FAERS Safety Report 17840106 (Version 1)
Quarter: 2020Q2

REPORT INFORMATION
  Report Type: Spontaneous
  Country: US (occurrence: US)
  Receive Date: 20200529
  Receipt Date: 20200529
  Transmission Date: 20200714
  Serious: No
  Sender: FDA-Public Use
  Company Number: None

PATIENT
  Age: 74 Year
  Sex: Female
  Weight: 46.62 kg

DRUGS (12)
  1. TRAMADOL 50MG [Concomitant]
     Active Substance: TRAMADOL
  2. ZOMETA [Concomitant]
     Active Substance: ZOLEDRONIC ACID
  3. CBD [Concomitant]
     Active Substance: CANNABIDIOL
  4. VITAMIN B-6 [Concomitant]
     Active Substance: PYRIDOXINE
  5. VITAMIN D (CHOLECALCIFEROL) [Concomitant]
     Active Substance: CHOLECALCIFEROL
  6. MAGNESIUM [Concomitant]
     Active Substance: MAGNESIUM
  7. POTASSIUM CHLORIDE 10MEQ [Concomitant]
     Active Substance: POTASSIUM CHLORIDE
  8. PANTOPRAZOLE 40MG [Concomitant]
     Active Substance: PANTOPRAZOLE SODIUM
  9. SIMVASTATIN 10MG [Concomitant]
     Active Substance: SIMVASTATIN
  10. CAPECITABINE. [Suspect]
     Active Substance: CAPECITABINE
     Indication: BREAST CANCER
     Dates: start: 20190506, end: 20200529
  11. ONDANSETRON 4MG [Concomitant]
     Active Substance: ONDANSETRON
  12. TYLENOL [Concomitant]
     Active Substance: ACETAMINOPHEN

REACTIONS (2)
  - Therapy change [None]
  - Tumour marker increased [None]

NARRATIVE: CASE EVENT DATE: 20200529
